FAERS Safety Report 4346073-6 (Version None)
Quarter: 2004Q2

REPORT INFORMATION
  Report Type: 
  Country: None (occurrence: None)
  Receive Date: 20040420
  Receipt Date: 20040407
  Transmission Date: 20050107
  Serious: Yes (Life-Threatening, Hospitalization)
  Sender: FDA-Public Use
  Company Number: A02200401249

PATIENT
  Age: 70 Year
  Sex: Female

DRUGS (1)
  1. FASTUREC - (RASBURICASE) - SOLUTION [Suspect]
     Dosage: 15 MG ONCE INTRAVENOUS NOS
     Route: 042
     Dates: start: 20040119, end: 20040119

REACTIONS (6)
  - ANAPHYLACTIC REACTION [None]
  - COMA [None]
  - HYPOTENSION [None]
  - LOSS OF CONSCIOUSNESS [None]
  - MALAISE [None]
  - SYNCOPE [None]
